FAERS Safety Report 6703938-5 (Version None)
Quarter: 2010Q2

REPORT INFORMATION
  Report Type: 
  Country: None (occurrence: None)
  Receive Date: 20100430
  Receipt Date: 20100420
  Transmission Date: 20101027
  Serious: Yes (Death)
  Sender: FDA-Public Use
  Company Number: JP-PFIZER INC-2010052124

PATIENT
  Age: 75 Year
  Sex: Female
  Weight: 42.676 kg

DRUGS (5)
  1. SILDENAFIL CITRATE [Suspect]
     Indication: PULMONARY ARTERIAL HYPERTENSION
     Dosage: 20 MG, 3X/DAY
     Route: 048
     Dates: start: 20100201
  2. WARFARIN [Concomitant]
     Dosage: UNK
     Route: 048
  3. DIGOXIN [Concomitant]
     Dosage: UNK
     Route: 048
  4. BERAPROST [Concomitant]
     Dosage: UNK
     Route: 048
     Dates: start: 20100118
  5. LASIX [Concomitant]
     Dosage: UNK
     Route: 042

REACTIONS (1)
  - DEATH [None]
